FAERS Safety Report 6711848-2 (Version None)
Quarter: 2010Q2

REPORT INFORMATION
  Report Type: 
  Country: None (occurrence: None)
  Receive Date: 20100505
  Receipt Date: 20100426
  Transmission Date: 20101027
  Serious: Yes (Hospitalization, Other)
  Sender: FDA-Public Use
  Company Number: BR-ABBOTT-10P-020-0623082-00

PATIENT
  Sex: Female
  Weight: 62 kg

DRUGS (6)
  1. HUMIRA [Suspect]
     Indication: RHEUMATOID ARTHRITIS
     Dates: start: 20090101
  2. LOSARTAN POTASSIUM [Concomitant]
     Indication: HYPERTENSION
  3. FUROSEMIDE [Concomitant]
     Indication: DRUG USE FOR UNKNOWN INDICATION
     Dosage: 1/2 TAB DAILY
  4. VERAPAMIL HYDROCHLORIDE [Concomitant]
     Indication: DRUG USE FOR UNKNOWN INDICATION
  5. ADOCERIN [Concomitant]
     Indication: DRUG USE FOR UNKNOWN INDICATION
  6. AMIODARONE HCL [Concomitant]
     Indication: DRUG USE FOR UNKNOWN INDICATION

REACTIONS (8)
  - ARRHYTHMIA [None]
  - ARTHRALGIA [None]
  - ILEUS PARALYTIC [None]
  - INCISION SITE INFECTION [None]
  - OSTEOARTHRITIS [None]
  - PYREXIA [None]
  - RENAL IMPAIRMENT [None]
  - SUTURE RELATED COMPLICATION [None]
